FAERS Safety Report 24276481 (Version 1)
Quarter: 2024Q3

REPORT INFORMATION
  Report Type: Report from Study
  Country: US (occurrence: None)
  Receive Date: 20240903
  Receipt Date: 20240903
  Transmission Date: 20241016
  Serious: Yes (Other)
  Sender: ASTRAZENECA
  Company Number: 2024A194199

PATIENT
  Age: 87 Year
  Sex: Female

DRUGS (1)
  1. TRUQAP [Suspect]
     Active Substance: CAPIVASERTIB
     Indication: Breast cancer female
     Dosage: DOSE: TAKE 1 200MG TABLET BY MOUTH BEFORE BREAKFAST AND 2 200MG TABLETS BY MOUTH BEFORE DINNER MO...
     Route: 048
     Dates: start: 20240318

REACTIONS (5)
  - Chronic kidney disease [Unknown]
  - Diarrhoea [Recovering/Resolving]
  - Malaise [Unknown]
  - Eating disorder [Unknown]
  - Product dose omission issue [Unknown]

NARRATIVE: CASE EVENT DATE: 20240816
